FAERS Safety Report 18424305 (Version 3)
Quarter: 2025Q2

REPORT INFORMATION
  Report Type: Report from Study
  Country: DE (occurrence: DE)
  Receive Date: 20201025
  Receipt Date: 20250511
  Transmission Date: 20250716
  Serious: Yes (Other)
  Sender: ROCHE
  Company Number: DE-ROCHE-2698450

PATIENT
  Age: 63 Year
  Sex: Male
  Weight: 87.0 kg

DRUGS (10)
  1. OCRELIZUMAB [Suspect]
     Active Substance: OCRELIZUMAB
     Indication: Primary progressive multiple sclerosis
     Route: 042
     Dates: start: 20181122, end: 20181207
  2. OCRELIZUMAB [Suspect]
     Active Substance: OCRELIZUMAB
     Route: 042
     Dates: start: 20190529
  3. COVID-19 VACCINE [Concomitant]
     Indication: COVID-19 prophylaxis
     Route: 030
     Dates: start: 20210124, end: 20210124
  4. COVID-19 VACCINE [Concomitant]
     Route: 030
     Dates: start: 20210214, end: 20210214
  5. CHOLECALCIFEROL [Concomitant]
     Active Substance: CHOLECALCIFEROL
     Indication: Vitamin D deficiency
     Route: 048
     Dates: start: 20140915
  6. PREGABALIN [Concomitant]
     Active Substance: PREGABALIN
     Indication: Dysaesthesia
     Route: 048
     Dates: start: 20181227
  7. TAMSUNAR [Concomitant]
     Indication: Benign prostatic hyperplasia
     Route: 048
     Dates: start: 201209
  8. GLATIRAMER ACETATE [Concomitant]
     Active Substance: GLATIRAMER ACETATE
     Dates: start: 201212
  9. Novavax [Concomitant]
     Indication: COVID-19 prophylaxis
     Route: 030
     Dates: start: 20220524, end: 20220524
  10. PFIZER-BIONTECH COVID-19 VACCINE [Concomitant]
     Active Substance: TOZINAMERAN
     Indication: COVID-19 prophylaxis
     Route: 030
     Dates: start: 20211110, end: 20211110

REACTIONS (2)
  - Dysphonia [Unknown]
  - Deafness neurosensory [Unknown]

NARRATIVE: CASE EVENT DATE: 20200801
